FAERS Safety Report 5706530-4 (Version None)
Quarter: 2008Q2

REPORT INFORMATION
  Report Type: 
  Country: None (occurrence: None)
  Receive Date: 20080414
  Receipt Date: 20080402
  Transmission Date: 20081010
  Serious: Yes (Life-Threatening, Hospitalization)
  Sender: FDA-Public Use
  Company Number: PERC20080034

PATIENT
  Sex: Male

DRUGS (6)
  1. PERCOCET [Suspect]
     Indication: PAIN
     Dosage: 5 TABS DAILY, TRANSPLACENTAL
     Route: 064
     Dates: start: 20070704, end: 20080220
  2. PERCOCET [Suspect]
     Indication: PAIN
     Dosage: 5 TABS DAILY, TRANSPLACENTAL
     Route: 064
     Dates: start: 20070704, end: 20080220
  3. FENTANYL CITRATE [Suspect]
     Indication: PAIN
     Dosage: AS NEEDED, TRANSPLACENTAL
     Route: 064
     Dates: start: 20070101
  4. COPAXONE [Suspect]
     Indication: MULTIPLE SCLEROSIS
     Dosage: 20 MG, TRANSPLACENTAL
     Route: 064
     Dates: start: 20070404, end: 20070704
  5. COPAXONE [Suspect]
     Indication: MULTIPLE SCLEROSIS
     Dosage: 20 MG, TRANSPLACENTAL
     Route: 064
     Dates: start: 20080116, end: 20080220
  6. LYRICA [Suspect]
     Indication: PAIN
     Dosage: TRANSPLACENTAL
     Route: 064
     Dates: start: 20070201, end: 20070701

REACTIONS (8)
  - CAESAREAN SECTION [None]
  - DRUG EXPOSURE DURING PREGNANCY [None]
  - FOETAL GROWTH RETARDATION [None]
  - HYPOGLYCAEMIA NEONATAL [None]
  - JAUNDICE NEONATAL [None]
  - NEONATAL TACHYPNOEA [None]
  - PREMATURE BABY [None]
  - SMALL FOR DATES BABY [None]
